FAERS Safety Report 6159556-3 (Version None)
Quarter: 2009Q2

REPORT INFORMATION
  Report Type: 
  Country: None (occurrence: None)
  Receive Date: 20090416
  Receipt Date: 20090416
  Transmission Date: 20091009
  Serious: Yes (Other)
  Sender: FDA-Public Use
  Company Number: None

PATIENT
  Sex: Female
  Weight: 117.028 kg

DRUGS (1)
  1. LEVOTHYROXINE SODIUM [Suspect]
     Indication: HYPOTHYROIDISM
     Dosage: 150MCG 1 QD 047
     Dates: start: 20081215, end: 20090406

REACTIONS (5)
  - BLOOD THYROID STIMULATING HORMONE INCREASED [None]
  - FATIGUE [None]
  - NAUSEA [None]
  - PRODUCT SUBSTITUTION ISSUE [None]
  - WEIGHT INCREASED [None]
